FAERS Safety Report 16899016 (Version 4)
Quarter: 2019Q4

REPORT INFORMATION
  Report Type: Spontaneous
  Country: US (occurrence: US)
  Receive Date: 20191009
  Receipt Date: 20191115
  Transmission Date: 20200122
  Serious: No
  Sender: FDA-Public Use
  Company Number: US-PFIZER INC-2018326139

PATIENT
  Age: 59 Year
  Sex: Female
  Weight: 154.2 kg

DRUGS (2)
  1. LYRICA [Suspect]
     Active Substance: PREGABALIN
     Dosage: 225 MG, DAILY, ((75MG; 2 CAPSULES IN THE MORNING AND 1 CAPSULE AT NIGHT))
  2. LYRICA [Suspect]
     Active Substance: PREGABALIN
     Indication: FIBROMYALGIA
     Dosage: 150 MG, 2X/DAY, ((TAKE 2 CAPSULES (150MG) BY ORAL ROUTE 2 TIMES PER DAY FOR 90 DAYS)
     Route: 048

REACTIONS (2)
  - Peripheral swelling [Unknown]
  - Intentional product misuse [Unknown]
